FAERS Safety Report 9323784 (Version 1)
Quarter: 2013Q2

REPORT INFORMATION
  Report Type: Spontaneous
  Country: US (occurrence: US)
  Receive Date: 20130603
  Receipt Date: 20130603
  Transmission Date: 20140414
  Serious: Yes (Other)
  Sender: FDA-Public Use
  Company Number: US-PFIZER INC-2013166654

PATIENT
  Age: 83 Year
  Sex: Male
  Weight: 68.03 kg

DRUGS (2)
  1. LYRICA [Suspect]
     Dosage: 50 MG, 1X/DAY
     Route: 048
     Dates: start: 20130430
  2. LYRICA [Suspect]
     Dosage: 100 MG (TAKING TWO 50 MG), 1X/DAY
     Route: 048
     Dates: end: 20130523

REACTIONS (8)
  - Herpes zoster [Unknown]
  - Blood magnesium decreased [Unknown]
  - Blood calcium decreased [Unknown]
  - Tendon pain [Unknown]
  - Myalgia [Unknown]
  - Local swelling [Unknown]
  - Gait disturbance [Unknown]
  - Visual acuity reduced [Unknown]
